FAERS Safety Report 10035520 (Version 2)
Quarter: 2014Q2

REPORT INFORMATION
  Report Type: Spontaneous
  Country: US (occurrence: US)
  Receive Date: 20140325
  Receipt Date: 20140421
  Transmission Date: 20141212
  Serious: No
  Sender: FDA-Public Use
  Company Number: US-PFIZER INC-2014083595

PATIENT
  Age: 19 Year
  Sex: Male
  Weight: 81.63 kg

DRUGS (3)
  1. VENLAFAXINE HCL [Suspect]
     Indication: ANXIETY DISORDER
     Dosage: 150 MG, DAILY
     Dates: start: 2012
  2. VENLAFAXINE ER [Suspect]
     Indication: ANXIETY DISORDER
     Dosage: 150 MG, UNK
     Dates: start: 201312
  3. SULFAMETHOXAZOLE W/TRIMETHOPRIM [Concomitant]
     Dosage: (SULFAMETHOXAZOLE 800MG/ TRIMETHOPRIM 160 MG), DAILY

REACTIONS (1)
  - Dyspnoea [Not Recovered/Not Resolved]
